FAERS Safety Report 6877581-1 (Version None)
Quarter: 2010Q3

REPORT INFORMATION
  Report Type: 
  Country: None (occurrence: None)
  Receive Date: 20100727
  Receipt Date: 20100313
  Transmission Date: 20110219
  Serious: No
  Sender: FDA-Public Use
  Company Number: US-ABBOTT-10P-163-0632329-00

PATIENT
  Sex: Female
  Weight: 90.8 kg

DRUGS (2)
  1. SYNTHROID [Suspect]
     Indication: HYPOTHYROIDISM
     Dates: start: 19900101, end: 20100201
  2. NATURAL THYROIDS [Concomitant]
     Indication: HYPOTHYROIDISM
     Dates: start: 20100201

REACTIONS (6)
  - ALOPECIA [None]
  - DEPRESSION [None]
  - HYPERSENSITIVITY [None]
  - MIGRAINE [None]
  - NERVOUSNESS [None]
  - WEIGHT INCREASED [None]
